FAERS Safety Report 8035606-4 (Version None)
Quarter: 2012Q1

REPORT INFORMATION
  Report Type: 
  Country: None (occurrence: None)
  Receive Date: 20120111
  Receipt Date: 20120103
  Transmission Date: 20120608
  Serious: Yes (Other)
  Sender: FDA-Public Use
  Company Number: US-US-EMD SERONO, INC.-7007628

PATIENT
  Sex: Female
  Weight: 55 kg

DRUGS (4)
  1. REBIF [Suspect]
     Indication: MULTIPLE SCLEROSIS
     Route: 058
     Dates: start: 20030202
  2. AMITRIPTYLINE HCL [Concomitant]
     Indication: PARAESTHESIA
  3. PROPAFENONE HCL [Concomitant]
     Indication: CARDIAC DISORDER
     Dates: start: 20101101
  4. METOPROLOL [Concomitant]
     Indication: CARDIAC DISORDER
     Dates: start: 20111102

REACTIONS (5)
  - FATIGUE [None]
  - HEART VALVE INCOMPETENCE [None]
  - EXTRASYSTOLES [None]
  - FOOT FRACTURE [None]
  - FOOT DEFORMITY [None]
